FAERS Safety Report 5317252-6 (Version None)
Quarter: 2007Q2

REPORT INFORMATION
  Report Type: 
  Country: None (occurrence: None)
  Receive Date: 20070504
  Receipt Date: 20070427
  Transmission Date: 20071010
  Serious: Yes (Hospitalization)
  Sender: FDA-Public Use
  Company Number: US-ROXANE LABORATORIES, INC-2007-BP-05820RO

PATIENT
  Age: 52 Year
  Sex: Female

DRUGS (7)
  1. METHADONE HCL [Suspect]
     Indication: DRUG WITHDRAWAL MAINTENANCE THERAPY
     Dosage: 145 MG QD
     Route: 048
  2. ACYCLOVIR [Concomitant]
     Route: 048
  3. ZIDOVUDINE [Concomitant]
     Route: 048
  4. LAMIVUDINE [Concomitant]
     Route: 048
  5. AMOXICILLIN [Concomitant]
     Route: 048
  6. RANITIDINE [Concomitant]
     Route: 048
  7. ALPRAZOLAM [Concomitant]
     Route: 048

REACTIONS (9)
  - ALPHA HAEMOLYTIC STREPTOCOCCAL INFECTION [None]
  - DIZZINESS [None]
  - ELECTROCARDIOGRAM QT PROLONGED [None]
  - NAUSEA [None]
  - PULSE ABSENT [None]
  - PYREXIA [None]
  - SYNCOPE [None]
  - TORSADE DE POINTES [None]
  - VENTRICULAR EXTRASYSTOLES [None]
